FAERS Safety Report 16849144 (Version 1)
Quarter: 2019Q3

REPORT INFORMATION
  Report Type: Report from Study
  Country: FR (occurrence: FR)
  Receive Date: 20190925
  Receipt Date: 20190925
  Transmission Date: 20191005
  Serious: Yes (Hospitalization)
  Sender: FDA-Public Use
  Company Number: FR-ROCHE-2406809

PATIENT
  Age: 81 Year
  Sex: Female
  Weight: 70 kg

DRUGS (3)
  1. CHOP [Concomitant]
     Active Substance: CYCLOPHOSPHAMIDE\DOXORUBICIN\PREDNISONE\VINCRISTINE
     Indication: MANTLE CELL LYMPHOMA
  2. RITUXIMAB. [Suspect]
     Active Substance: RITUXIMAB
     Indication: MANTLE CELL LYMPHOMA
     Route: 058
     Dates: start: 20190820
  3. RITUXIMAB. [Concomitant]
     Active Substance: RITUXIMAB
     Route: 042

REACTIONS (2)
  - Renal failure [Recovering/Resolving]
  - Gastrointestinal disorder [Recovering/Resolving]

NARRATIVE: CASE EVENT DATE: 20190908
